FAERS Safety Report 20216472 (Version 1)
Quarter: 2021Q4

REPORT INFORMATION
  Report Type: Spontaneous
  Country: US (occurrence: None)
  Receive Date: 20211221
  Receipt Date: 20211221
  Transmission Date: 20220303
  Serious: Yes (Hospitalization)
  Sender: FDA-Public Use
  Company Number: None

PATIENT
  Age: 54 Year
  Sex: Female
  Weight: 116.55 kg

DRUGS (22)
  1. VOTRIENT [Suspect]
     Active Substance: PAZOPANIB HYDROCHLORIDE
     Indication: Uterine cancer
     Dosage: FREQUENCY : DAILY;?
     Route: 048
     Dates: start: 20211110
  2. ZINC 50MG [Concomitant]
  3. VITAMIN B12 1000MCG [Concomitant]
  4. TYLENOL [Concomitant]
     Active Substance: ACETAMINOPHEN
  5. LORATADINE [Concomitant]
     Active Substance: LORATADINE
  6. MUCINEX 600MG [Concomitant]
  7. MATRICARIA RECUTITA [Concomitant]
     Active Substance: MATRICARIA RECUTITA
  8. GAS-X, PEPPERMINT TEA [Concomitant]
  9. IMODIUM, ONDANSETRON [Concomitant]
  10. GREEN TEA, MELATONIN [Concomitant]
  11. LOSARTAN [Concomitant]
     Active Substance: LOSARTAN
  12. METFORMIN HYDROCHLORIDE [Concomitant]
     Active Substance: METFORMIN HYDROCHLORIDE
  13. JANUVIA [Concomitant]
     Active Substance: SITAGLIPTIN PHOSPHATE
  14. GLIMEPIRIDE [Concomitant]
     Active Substance: GLIMEPIRIDE
  15. HYDROCHLOROTHIAZIDE [Concomitant]
     Active Substance: HYDROCHLOROTHIAZIDE
  16. TRAMADOL [Concomitant]
     Active Substance: TRAMADOL
  17. ATORVASTATIN [Concomitant]
     Active Substance: ATORVASTATIN
  18. HYDROXYZINE [Concomitant]
     Active Substance: HYDROXYZINE HYDROCHLORIDE
  19. CALTRATE 600+D 600-800MG [Concomitant]
  20. VITAMIN D 50MCG [Concomitant]
  21. VITAMIN C 500MG [Concomitant]
  22. IRON 325MG [Concomitant]

REACTIONS (3)
  - Abdominal pain upper [None]
  - Nausea [None]
  - Diarrhoea [None]

NARRATIVE: CASE EVENT DATE: 20211218
